FAERS Safety Report 8127894-0 (Version None)
Quarter: 2012Q1

REPORT INFORMATION
  Report Type: 
  Country: None (occurrence: None)
  Receive Date: 20120210
  Receipt Date: 20120201
  Transmission Date: 20120608
  Serious: Yes (Hospitalization, Other)
  Sender: FDA-Public Use
  Company Number: DE-ABBOTT-11P-062-0873009-00

PATIENT
  Sex: Male
  Weight: 55 kg

DRUGS (6)
  1. AZATHIOPRINE [Concomitant]
     Indication: CROHN'S DISEASE
  2. MESALAMINE [Concomitant]
     Indication: CROHN'S DISEASE
  3. PREDNISONE TAB [Concomitant]
     Indication: CROHN'S DISEASE
     Dates: start: 20110804, end: 20111015
  4. HUMIRA [Suspect]
     Route: 058
     Dates: end: 20100823
  5. BUDESONIDE [Concomitant]
     Indication: CROHN'S DISEASE
  6. HUMIRA [Suspect]
     Indication: CROHN'S DISEASE
     Route: 058
     Dates: start: 20090525, end: 20090525

REACTIONS (1)
  - SMALL INTESTINE CARCINOMA [None]
